FAERS Safety Report 10516344 (Version 2)
Quarter: 2014Q4

REPORT INFORMATION
  Report Type: Spontaneous
  Country: FR (occurrence: GB)
  Receive Date: 20141014
  Receipt Date: 20141014
  Transmission Date: 20150528
  Serious: Yes (Other)
  Sender: FDA-Public Use
  Company Number: FR-MYLANLABS-2007S1005328

PATIENT

DRUGS (3)
  1. CYSTAGON [Suspect]
     Active Substance: CYSTEAMINE BITARTRATE
     Indication: CYSTINOSIS
     Dosage: 0 MG,QD
     Route: 048
     Dates: start: 19961106, end: 20070627
  2. CYSTAGON [Suspect]
     Active Substance: CYSTEAMINE BITARTRATE
     Dosage: UNK, QD
     Route: 048
  3. CYSTAGON [Suspect]
     Active Substance: CYSTEAMINE BITARTRATE
     Dosage: UNK
     Route: 048
     Dates: start: 2007

REACTIONS (2)
  - Antiphospholipid syndrome [Not Recovered/Not Resolved]
  - Lupus-like syndrome [Not Recovered/Not Resolved]
